FAERS Safety Report 5591958-6 (Version None)
Quarter: 2008Q1

REPORT INFORMATION
  Report Type: 
  Country: None (occurrence: None)
  Receive Date: 20080115
  Receipt Date: 20080107
  Transmission Date: 20080703
  Serious: Yes (Hospitalization)
  Sender: FDA-Public Use
  Company Number: US-ELI_LILLY_AND_COMPANY-US200710004798

PATIENT
  Age: 73 Year
  Sex: Male
  Weight: 120.36 kg

DRUGS (3)
  1. HUMULIN 70/30 [Suspect]
  2. CLONAZEPAM [Concomitant]
  3. EFFEXOR [Concomitant]

REACTIONS (12)
  - BLOOD GLUCOSE DECREASED [None]
  - DEPRESSION [None]
  - DISTURBANCE IN ATTENTION [None]
  - FAECES HARD [None]
  - HYPERHIDROSIS [None]
  - INSOMNIA [None]
  - MENTAL DISORDER [None]
  - NERVOUS SYSTEM DISORDER [None]
  - TINNITUS [None]
  - VITREOUS FLOATERS [None]
  - WEIGHT DECREASED [None]
  - WEIGHT INCREASED [None]
